FAERS Safety Report 9296969 (Version 2)
Quarter: 2013Q2

REPORT INFORMATION
  Report Type: Report from Study
  Country: GB (occurrence: GB)
  Receive Date: 20130518
  Receipt Date: 20130626
  Transmission Date: 20140414
  Serious: Yes (Hospitalization)
  Sender: FDA-Public Use
  Company Number: GB-ROCHE-1225932

PATIENT
  Age: 70 Year
  Sex: Female

DRUGS (6)
  1. RITUXIMAB [Suspect]
     Indication: RHEUMATOID ARTHRITIS
     Route: 065
     Dates: start: 20091202
  2. METHOCARBAMOL [Concomitant]
     Route: 065
  3. METHOTREXATE [Concomitant]
  4. MADOPAR [Concomitant]
     Dosage: 12.5/50 MG
     Route: 065
  5. FOLIC ACID [Concomitant]
     Route: 065
  6. PARACETAMOL [Concomitant]
     Dosage: FOR ONE WEEK
     Route: 065

REACTIONS (1)
  - Joint swelling [Recovering/Resolving]
